FAERS Safety Report 5163007-5 (Version None)
Quarter: 2006Q4

REPORT INFORMATION
  Report Type: 
  Country: None (occurrence: None)
  Receive Date: 20061201
  Receipt Date: 20060830
  Transmission Date: 20070319
  Serious: Yes (Hospitalization)
  Sender: FDA-Public Use
  Company Number: 2006GB01563

PATIENT
  Sex: Female

DRUGS (5)
  1. FELODIPINE [Suspect]
     Route: 048
     Dates: end: 20050820
  2. ENALAPRIL MALEATE [Suspect]
     Route: 048
     Dates: end: 20050820
  3. BECLOMETHASONE DIPROPIONATE [Concomitant]
     Indication: ASTHMA
     Route: 055
  4. ACETAMINOPHEN [Concomitant]
     Indication: PAIN
     Route: 048
  5. SALBUTAMOL [Concomitant]
     Indication: ASTHMA
     Route: 045

REACTIONS (1)
  - FALL [None]
